FAERS Safety Report 24747908 (Version 1)
Quarter: 2024Q4

REPORT INFORMATION
  Report Type: Spontaneous
  Country: US (occurrence: None)
  Receive Date: 20241217
  Receipt Date: 20241217
  Transmission Date: 20250114
  Serious: Yes (Other)
  Sender: Public
  Company Number: None

PATIENT
  Age: 73 Year
  Sex: Male
  Weight: 65.25 kg

DRUGS (9)
  1. ECONAZOLE NITRATE [Suspect]
     Active Substance: ECONAZOLE NITRATE
     Indication: Fungal skin infection
     Dosage: 2 GRAMS TWICE A DAY TOPICAL ?
     Route: 061
     Dates: start: 20241206, end: 20241209
  2. XARELTO [Suspect]
     Active Substance: RIVAROXABAN
  3. KALE [Suspect]
     Active Substance: KALE
  4. DILTIAZEM [Concomitant]
     Active Substance: DILTIAZEM
  5. PRAMIPEXOLE [Concomitant]
     Active Substance: PRAMIPEXOLE\PRAMIPEXOLE DIHYDROCHLORIDE
  6. ATORVASTATIN [Concomitant]
     Active Substance: ATORVASTATIN
  7. DEVICE [Concomitant]
     Active Substance: DEVICE
  8. VITAMIN D [Concomitant]
     Active Substance: VITAMIN D NOS
  9. algal omega 3 [Concomitant]

REACTIONS (3)
  - Haemorrhage [None]
  - Scratch [None]
  - Drug interaction [None]

NARRATIVE: CASE EVENT DATE: 20241209
